FAERS Safety Report 6377352-9 (Version None)
Quarter: 2009Q3

REPORT INFORMATION
  Report Type: 
  Country: None (occurrence: None)
  Receive Date: 20090921
  Receipt Date: 20090907
  Transmission Date: 20100115
  Serious: Yes (Other)
  Sender: FDA-Public Use
  Company Number: AUR-APL-2009-00607

PATIENT
  Age: 21 Year
  Sex: Female

DRUGS (1)
  1. RISPERIDONE [Suspect]
     Indication: SCHIZOPHRENIA, PARANOID TYPE
     Dosage: 4MG - DAILY -

REACTIONS (2)
  - OBSESSIVE RUMINATION [None]
  - THERAPEUTIC RESPONSE DECREASED [None]
